FAERS Safety Report 11401849 (Version 1)
Quarter: 2015Q3

REPORT INFORMATION
  Report Type: Spontaneous
  Country: US (occurrence: US)
  Receive Date: 20150821
  Receipt Date: 20150821
  Transmission Date: 20151125
  Serious: No
  Sender: FDA-Public Use
  Company Number: US-ROCHE-1382173

PATIENT
  Sex: Male
  Weight: 74.46 kg

DRUGS (4)
  1. SOVALDI [Concomitant]
     Active Substance: SOFOSBUVIR
     Route: 048
     Dates: start: 20140208
  2. RIBASPHERE [Concomitant]
     Active Substance: RIBAVIRIN
     Dosage: 400MG - AM
     Route: 048
     Dates: start: 20140208
  3. RIBASPHERE [Concomitant]
     Active Substance: RIBAVIRIN
     Dosage: 600MG - PM
     Route: 048
     Dates: start: 20140208
  4. PEGASYS [Suspect]
     Active Substance: PEGINTERFERON ALFA-2A
     Indication: PRODUCT USED FOR UNKNOWN INDICATION
     Route: 058
     Dates: start: 20140208

REACTIONS (1)
  - Dry skin [Recovered/Resolved]
